APPROVED DRUG PRODUCT: METOPROLOL TARTRATE
Active Ingredient: METOPROLOL TARTRATE
Strength: 50MG
Dosage Form/Route: TABLET;ORAL
Application: A073666 | Product #001
Applicant: PHARMOBEDIENT CONSULTING LLC
Approved: Dec 21, 1993 | RLD: No | RS: No | Type: DISCN